FAERS Safety Report 25250687 (Version 4)
Quarter: 2025Q3

REPORT INFORMATION
  Report Type: Spontaneous
  Country: JP (occurrence: JP)
  Receive Date: 20250429
  Receipt Date: 20250801
  Transmission Date: 20251021
  Serious: Yes (Death, Hospitalization, Other)
  Sender: ALEXION PHARMACEUTICALS
  Company Number: JP-ASTRAZENECA-250026795_012620_P_1

PATIENT
  Age: 81 Year
  Sex: Female
  Weight: 55 kg

DRUGS (31)
  1. TRUQAP [Suspect]
     Active Substance: CAPIVASERTIB
     Indication: Breast cancer
     Dosage: ON A 4-DAYS-ON, 3-DAYS-OFF SCHEDULE, WHICH WAS CHANGED DUE TO PD (PLEURAL DISSEMINATION)
     Dates: start: 20250313, end: 20250316
  2. FASLODEX [Suspect]
     Active Substance: FULVESTRANT
     Indication: Breast cancer
     Dosage: DOSE UNKNOWN, WHICH WAS CHANGED DUE TO PD (PLEURAL DISSEMINATION)
     Dates: start: 20210929, end: 20240109
  3. FASLODEX [Suspect]
     Active Substance: FULVESTRANT
     Dosage: DOSE UNKNOWN, WHICH WAS CHANGED DUE TO PD (PLEURAL DISSEMINATION)
     Dates: start: 20250313, end: 20250318
  4. MOUNJARO [Concomitant]
     Active Substance: TIRZEPATIDE
     Route: 065
  5. MOUNJARO [Concomitant]
     Active Substance: TIRZEPATIDE
     Route: 065
  6. MOUNJARO [Concomitant]
     Active Substance: TIRZEPATIDE
     Route: 065
  7. JARDIANCE [Concomitant]
     Active Substance: EMPAGLIFLOZIN
     Route: 065
  8. JARDIANCE [Concomitant]
     Active Substance: EMPAGLIFLOZIN
     Route: 065
  9. ACETAMINOPHEN [Concomitant]
     Active Substance: ACETAMINOPHEN
     Indication: Traumatic pain
  10. ACETAMINOPHEN [Concomitant]
     Active Substance: ACETAMINOPHEN
  11. PREGABALIN [Concomitant]
     Active Substance: PREGABALIN
     Indication: Traumatic pain
  12. PREGABALIN [Concomitant]
     Active Substance: PREGABALIN
  13. METHYLCOBALAMIN [Concomitant]
     Active Substance: METHYLCOBALAMIN
     Indication: Traumatic pain
  14. METHYLCOBALAMIN [Concomitant]
     Active Substance: METHYLCOBALAMIN
  15. BISOPROLOL FUMARATE [Concomitant]
     Active Substance: BISOPROLOL FUMARATE
     Indication: Hypertension
  16. BISOPROLOL FUMARATE [Concomitant]
     Active Substance: BISOPROLOL FUMARATE
  17. TELMISARTAN [Concomitant]
     Active Substance: TELMISARTAN
     Indication: Hypertension
  18. TELMISARTAN [Concomitant]
     Active Substance: TELMISARTAN
  19. AMLODIPINE [Concomitant]
     Active Substance: AMLODIPINE BESYLATE
     Indication: Hypertension
  20. AMLODIPINE [Concomitant]
     Active Substance: AMLODIPINE BESYLATE
  21. ROSUVASTATIN [Concomitant]
     Active Substance: ROSUVASTATIN
     Indication: Hypertension
  22. ROSUVASTATIN [Concomitant]
     Active Substance: ROSUVASTATIN
  23. SHAKUYAKUKANZOTO [Concomitant]
     Active Substance: HERBALS
     Indication: Insomnia
  24. SHAKUYAKUKANZOTO [Concomitant]
     Active Substance: HERBALS
     Indication: Insomnia
  25. BELSOMRA [Concomitant]
     Active Substance: SUVOREXANT
     Indication: Insomnia
  26. BELSOMRA [Concomitant]
     Active Substance: SUVOREXANT
     Indication: Insomnia
  27. HUMULIN R [Concomitant]
     Active Substance: INSULIN HUMAN
     Indication: Type 2 diabetes mellitus
     Dosage: DOSE UNKNOWN, FIXATION + SCALE
     Dates: start: 20250312
  28. ANASTROZOLE [Concomitant]
     Active Substance: ANASTROZOLE
     Indication: Breast cancer
     Route: 065
  29. DENOSUMAB [Concomitant]
     Active Substance: DENOSUMAB
     Indication: Breast cancer
     Route: 065
  30. INVEGA [Concomitant]
     Active Substance: PALIPERIDONE
     Indication: Breast cancer
     Route: 065
  31. DICLOFENAC SODIUM [Concomitant]
     Active Substance: DICLOFENAC SODIUM

REACTIONS (21)
  - Death [Fatal]
  - Cerebral infarction [Recovered/Resolved with Sequelae]
  - Atrial fibrillation [Unknown]
  - Gastrointestinal haemorrhage [Unknown]
  - Renal impairment [Recovered/Resolved with Sequelae]
  - Bacteraemia [Unknown]
  - Hyperkalaemia [Unknown]
  - Hyperglycaemia [Recovered/Resolved]
  - Performance status decreased [Unknown]
  - Dehydration [Unknown]
  - Anaemia [Unknown]
  - Hypoglycaemia [Unknown]
  - Pyelonephritis [Unknown]
  - Sepsis [Unknown]
  - Pain in extremity [Unknown]
  - Feeding disorder [Unknown]
  - Hyperglycaemia [Unknown]
  - Blood pressure decreased [Unknown]
  - Urine output decreased [Unknown]
  - Somnolence [Unknown]
  - Electrocardiogram T wave abnormal [Unknown]

NARRATIVE: CASE EVENT DATE: 20250101
